FAERS Safety Report 13407933 (Version 2)
Quarter: 2017Q2

REPORT INFORMATION
  Report Type: Report from Study
  Country: None (occurrence: US)
  Receive Date: 20170406
  Receipt Date: 20170526
  Transmission Date: 20170830
  Serious: Yes (Hospitalization, Other)
  Sender: FDA-Public Use
  Company Number: US-ABBVIE-17K-163-1931311-00

PATIENT
  Age: 55 Year
  Sex: Female

DRUGS (2)
  1. HUMIRA [Suspect]
     Active Substance: ADALIMUMAB
     Indication: CROHN^S DISEASE
     Route: 058
     Dates: start: 201601, end: 201703
  2. ALCORTIN [Concomitant]
     Active Substance: HYDROCORTISONE\IODOQUINOL
     Indication: PRODUCT USED FOR UNKNOWN INDICATION

REACTIONS (9)
  - Blood magnesium decreased [Not Recovered/Not Resolved]
  - Renal failure [Recovered/Resolved]
  - Dehydration [Recovered/Resolved]
  - Medical induction of coma [Unknown]
  - Pneumonia legionella [Recovered/Resolved]
  - Immunosuppression [Not Recovered/Not Resolved]
  - Laryngeal ulceration [Recovered/Resolved]
  - Endotracheal intubation complication [Recovering/Resolving]
  - Influenza [Recovered/Resolved]

NARRATIVE: CASE EVENT DATE: 20170304
